FAERS Safety Report 6025213-7 (Version None)
Quarter: 2008Q4

REPORT INFORMATION
  Report Type: 
  Country: None (occurrence: None)
  Receive Date: 20081231
  Receipt Date: 20081222
  Transmission Date: 20090506
  Serious: Yes (Hospitalization)
  Sender: FDA-Public Use
  Company Number: JP-ASTRAZENECA-2008SE04749

PATIENT
  Age: 81 Year
  Sex: Male
  Weight: 41 kg

DRUGS (5)
  1. BLOPRESS [Suspect]
     Indication: CARDIAC FAILURE CHRONIC
     Route: 048
     Dates: start: 20061102, end: 20070902
  2. ALDACTONE [Concomitant]
     Indication: CARDIAC FAILURE CHRONIC
     Route: 048
     Dates: end: 20070902
  3. ARTIST [Concomitant]
     Indication: CARDIAC FAILURE CHRONIC
     Route: 048
  4. DIART [Concomitant]
     Indication: CARDIAC FAILURE CHRONIC
     Route: 048
  5. GASTER D [Concomitant]
     Indication: GASTRITIS
     Route: 048

REACTIONS (3)
  - BLOOD PRESSURE DECREASED [None]
  - DEHYDRATION [None]
  - RENAL FAILURE ACUTE [None]
